FAERS Safety Report 24364390 (Version 1)
Quarter: 2024Q3

REPORT INFORMATION
  Report Type: Spontaneous
  Country: AU (occurrence: AU)
  Receive Date: 20240926
  Receipt Date: 20240926
  Transmission Date: 20241017
  Serious: Yes (Hospitalization, Other)
  Sender: CIPLA
  Company Number: AU-CIPLA LTD.-2024AU10484

PATIENT

DRUGS (25)
  1. EMTRICITABINE\TENOFOVIR [Suspect]
     Active Substance: EMTRICITABINE\TENOFOVIR
     Indication: Prophylaxis against HIV infection
     Dosage: 1 DOSAGE FORM, QD STRENGTH (300+200 MG), 300+200 MG IN THE MORNING
     Route: 065
     Dates: start: 2023, end: 2023
  2. DAPAGLIFLOZIN [Suspect]
     Active Substance: DAPAGLIFLOZIN
     Indication: Type 2 diabetes mellitus
     Dosage: 10 MILLIGRAM, QD (IN THE MORNING)
     Route: 048
     Dates: start: 2018
  3. TELMISARTAN [Suspect]
     Active Substance: TELMISARTAN
     Indication: Hypertension
     Dosage: 40 MILLIGRAM, QD (MORNING)
     Route: 048
     Dates: start: 2018
  4. BENSERAZIDE\LEVODOPA [Suspect]
     Active Substance: BENSERAZIDE\LEVODOPA
     Indication: Parkinsonism
     Dosage: UNK
     Route: 065
     Dates: start: 2020
  5. BENSERAZIDE\LEVODOPA [Suspect]
     Active Substance: BENSERAZIDE\LEVODOPA
     Dosage: 1 DOSAGE FORM, TID STRENGTH 100+25 MG, 100+25 MG 3 TIMES DAILY
     Route: 048
     Dates: start: 2021, end: 2023
  6. METOCLOPRAMIDE [Concomitant]
     Active Substance: METOCLOPRAMIDE
     Indication: Nausea
     Dosage: 10 MILLIGRAM, QD (MORNING)
     Route: 048
     Dates: start: 2022, end: 2023
  7. PROCHLORPERAZINE [Concomitant]
     Active Substance: PROCHLORPERAZINE
     Indication: Nausea
     Dosage: 5 MG UP TO 3 TIMES DAILY
     Route: 048
     Dates: start: 2023, end: 2023
  8. ONDANSETRON [Concomitant]
     Active Substance: ONDANSETRON
     Indication: Nausea
     Dosage: 4 MG UP TO 3 TIMES DAILY
     Route: 048
     Dates: start: 2023, end: 2023
  9. LACTULOSE [Concomitant]
     Active Substance: LACTULOSE
     Indication: Constipation
     Dosage: 10 ML TWICE DAILY AS REQUIRED
     Route: 048
     Dates: start: 2022, end: 2023
  10. ENTECAVIR [Concomitant]
     Active Substance: ENTECAVIR
     Indication: Chronic hepatitis B
     Dosage: 0.5 MILLIGRAM, QD (EVENING)
     Route: 048
     Dates: start: 2022
  11. TEMAZEPAM [Concomitant]
     Active Substance: TEMAZEPAM
     Indication: Insomnia
     Dosage: 10 MG AT NIGHT AND 10 MG AS REQUIRED
     Route: 065
     Dates: start: 2022, end: 2023
  12. QUETIAPINE [Concomitant]
     Active Substance: QUETIAPINE
     Indication: Bipolar disorder
     Dosage: 50 MILLIGRAM (MODIFIED RELEASE), QD (AT NIGHT)
     Route: 048
     Dates: start: 2018
  13. VORTIOXETINE [Concomitant]
     Active Substance: VORTIOXETINE
     Indication: Bipolar disorder
     Dosage: 30 MILLIGRAM, QD (MORNING)
     Route: 048
     Dates: start: 2021
  14. LINAGLIPTIN\METFORMIN HYDROCHLORIDE [Concomitant]
     Active Substance: LINAGLIPTIN\METFORMIN HYDROCHLORIDE
     Indication: Type 2 diabetes mellitus
     Dosage: STRENGTH (2.5 MG+1 G), 2.5 MG BID+1
     Route: 048
     Dates: start: 2018
  15. INSULIN GLARGINE [Concomitant]
     Active Substance: INSULIN GLARGINE
     Indication: Type 2 diabetes mellitus
     Dosage: STRENGTH (30 UNITS) 30 UNITS IN THE EVENING
     Route: 058
     Dates: start: 2018, end: 2023
  16. ACETAMINOPHEN [Concomitant]
     Active Substance: ACETAMINOPHEN
     Indication: Cervical spinal stenosis
     Dosage: (MODIFIED RELEASE) 1.33 G TWICE DAILY AS REQUIRED
     Route: 048
     Dates: start: 2018
  17. ACETAMINOPHEN [Concomitant]
     Active Substance: ACETAMINOPHEN
     Indication: Pain
  18. ACETAMINOPHEN [Concomitant]
     Active Substance: ACETAMINOPHEN
     Indication: Spinal osteoarthritis
  19. DIAZEPAM [Concomitant]
     Active Substance: DIAZEPAM
     Indication: Anxiety
     Dosage: 5 MILLIGRAM, QD (AT NIGHT)
     Route: 048
     Dates: start: 2018
  20. TIOTROPIUM [Concomitant]
     Active Substance: TIOTROPIUM
     Indication: Chronic obstructive pulmonary disease
     Dosage: 2.5 MICROGRAM, QD (IN MORNING)
     Dates: start: 2018
  21. BUDESONIDE\FORMOTEROL [Concomitant]
     Active Substance: BUDESONIDE\FORMOTEROL
     Indication: Chronic obstructive pulmonary disease
     Dosage: STRENGTH (400+12 MICROGRAMS) 400+12 MICROGRAMS, BID
     Dates: start: 2018
  22. ALBUTEROL [Concomitant]
     Active Substance: ALBUTEROL
     Indication: Chronic obstructive pulmonary disease
     Dosage: 200 MICROGRAM 4 TIMES DAILY  AS REQUIRED
     Dates: start: 2018
  23. ATORVASTATIN [Concomitant]
     Active Substance: ATORVASTATIN
     Indication: Hypercholesterolaemia
     Dosage: 80 MILLIGRAM, QD (AT NIGHT)
     Route: 048
     Dates: start: 2018
  24. FENOFIBRATE [Concomitant]
     Active Substance: FENOFIBRATE
     Indication: Hypercholesterolaemia
     Dosage: 145 MILLIGRAM, QD (IN THE MORNING)
     Route: 048
     Dates: start: 2018
  25. LEVOTHYROXINE [Concomitant]
     Active Substance: LEVOTHYROXINE\LEVOTHYROXINE SODIUM
     Indication: Thyroid hormone replacement therapy
     Dosage: 100 MICROGRAMS DAILY MONDAY TO FRIDAY,  AND 150 MICROGRAMS DAILY SATURDAY AND SUNDAY
     Route: 065
     Dates: start: 2018

REACTIONS (4)
  - Euglycaemic diabetic ketoacidosis [Unknown]
  - Nephropathy toxic [Unknown]
  - Acute kidney injury [Recovered/Resolved]
  - Nausea [Recovering/Resolving]
